FAERS Safety Report 11815486 (Version 1)
Quarter: 2015Q4

REPORT INFORMATION
  Report Type: Spontaneous
  Country: US (occurrence: US)
  Receive Date: 20151209
  Receipt Date: 20151209
  Transmission Date: 20160305
  Serious: Yes (Other)
  Sender: FDA-Public Use
  Company Number: US-MYLANLABS-2015M1044079

PATIENT

DRUGS (4)
  1. CYCLOPHOSPHAMIDE. [Suspect]
     Active Substance: CYCLOPHOSPHAMIDE
     Indication: MEDULLOBLASTOMA RECURRENT
     Dosage: 2100 MG/M2 FOR 2 DAYS
     Route: 065
  2. CISPLATIN. [Suspect]
     Active Substance: CISPLATIN
     Indication: MEDULLOBLASTOMA RECURRENT
     Dosage: 75 MG/M2 FOR 1 DAY
     Route: 065
  3. ETOPOSIDE. [Suspect]
     Active Substance: ETOPOSIDE
     Indication: MEDULLOBLASTOMA RECURRENT
     Dosage: 100 MG/M2 FOR 2 DAYS
     Route: 065
  4. TOPOTECAN [Suspect]
     Active Substance: TOPOTECAN\TOPOTECAN HYDROCHLORIDE
     Indication: MEDULLOBLASTOMA RECURRENT
     Dosage: 2 MG/M2 FOR 4 DAYS
     Route: 065

REACTIONS (3)
  - Infection [Unknown]
  - Thrombocytopenia [Unknown]
  - Mucosal inflammation [Unknown]
